FAERS Safety Report 7348081-X (Version None)
Quarter: 2011Q1

REPORT INFORMATION
  Report Type: 
  Country: None (occurrence: None)
  Receive Date: 20110311
  Receipt Date: 20110302
  Transmission Date: 20110831
  Serious: Yes (Hospitalization, Other)
  Sender: FDA-Public Use
  Company Number: US-SANOFI-AVENTIS-A03200701987

PATIENT
  Age: 56 Year
  Sex: Female
  Weight: 81.64 kg

DRUGS (14)
  1. PLAVIX [Suspect]
     Dosage: UNIT DOSE: 75 MG
     Route: 048
     Dates: start: 19980101, end: 20051101
  2. PLAVIX [Suspect]
     Indication: CARDIOVASCULAR DISORDER
     Dosage: UNIT DOSE: 75 MG
     Route: 048
     Dates: start: 19980101, end: 20051101
  3. PLAVIX [Suspect]
     Route: 048
     Dates: start: 20060505
  4. TRAZODONE HCL [Concomitant]
  5. EXCEDRIN (MIGRAINE) [Concomitant]
     Indication: HEADACHE
  6. PLAVIX [Suspect]
     Route: 048
     Dates: start: 20060505
  7. PAXIL [Concomitant]
  8. NORVASC [Concomitant]
  9. PREVACID [Concomitant]
  10. LODINE XL [Concomitant]
     Indication: PAIN
  11. PLAVIX [Suspect]
     Route: 048
     Dates: start: 20051112
  12. PLAVIX [Suspect]
     Route: 048
     Dates: start: 20051112
  13. NORMODYNE [Concomitant]
  14. ATACAND HCT [Concomitant]
     Dosage: 32/254 ONE

REACTIONS (21)
  - FALL [None]
  - CERVICOBRACHIAL SYNDROME [None]
  - CONDITION AGGRAVATED [None]
  - MULTIPLE SCLEROSIS [None]
  - VOMITING [None]
  - ANAEMIA [None]
  - CONTUSION [None]
  - HAEMATOCRIT DECREASED [None]
  - PARAESTHESIA [None]
  - NAUSEA [None]
  - DIZZINESS [None]
  - ABDOMINAL PAIN UPPER [None]
  - FAECES DISCOLOURED [None]
  - LABORATORY TEST ABNORMAL [None]
  - UPPER GASTROINTESTINAL HAEMORRHAGE [None]
  - DYSPNOEA [None]
  - GASTRIC ULCER HAEMORRHAGE [None]
  - HYPOAESTHESIA [None]
  - CARPAL TUNNEL SYNDROME [None]
  - FATIGUE [None]
  - SYNCOPE [None]
